FAERS Safety Report 20942857 (Version 1)
Quarter: 2022Q2

REPORT INFORMATION
  Report Type: Spontaneous
  Country: US (occurrence: US)
  Receive Date: 20220610
  Receipt Date: 20220610
  Transmission Date: 20220720
  Serious: Yes (Other)
  Sender: FDA-Public Use
  Company Number: US-Blueprint Medicines Corporation-172

PATIENT
  Sex: Male

DRUGS (1)
  1. AYVAKIT [Suspect]
     Active Substance: AVAPRITINIB
     Indication: Gastrointestinal stromal tumour
     Route: 048
     Dates: start: 20210415

REACTIONS (6)
  - Papilloedema [Unknown]
  - Brain oedema [Unknown]
  - Presyncope [Unknown]
  - Blood calcium decreased [Unknown]
  - Haemoglobin decreased [Unknown]
  - Fatigue [Unknown]
